FAERS Safety Report 26087634 (Version 2)
Quarter: 2025Q4

REPORT INFORMATION
  Report Type: Spontaneous
  Country: TR (occurrence: TR)
  Receive Date: 20251125
  Receipt Date: 20251224
  Transmission Date: 20260117
  Serious: Yes (Death, Hospitalization, Other)
  Sender: AMGEN
  Company Number: TR-AMGEN-USASP2025228605

PATIENT

DRUGS (3)
  1. CARFILZOMIB [Suspect]
     Active Substance: CARFILZOMIB
     Indication: Plasma cell myeloma
     Dosage: UNK
     Route: 065
  2. LENALIDOMIDE [Concomitant]
     Active Substance: LENALIDOMIDE
     Indication: Plasma cell myeloma
     Dosage: UNK
     Route: 065
  3. DEXAMETHASONE [Concomitant]
     Active Substance: DEXAMETHASONE
     Indication: Plasma cell myeloma
     Dosage: UNK
     Route: 065

REACTIONS (15)
  - Death [Fatal]
  - Device related infection [Fatal]
  - COVID-19 pneumonia [Unknown]
  - Appendicitis [Unknown]
  - Neutropenia [Unknown]
  - Upper respiratory tract infection [Unknown]
  - Plasma cell myeloma refractory [Unknown]
  - Pneumonia [Unknown]
  - Herpes simplex [Unknown]
  - COVID-19 [Unknown]
  - Gastroenteritis [Unknown]
  - Candida infection [Unknown]
  - Conjunctivitis [Unknown]
  - Soft tissue infection [Unknown]
  - Cellulitis [Unknown]
